FAERS Safety Report 8925446 (Version 1)
Quarter: 2012Q4

REPORT INFORMATION
  Report Type: Spontaneous
  Country: US (occurrence: None)
  Receive Date: 20121126
  Receipt Date: 20121126
  Transmission Date: 20130627
  Serious: Yes (Disabling, Other)
  Sender: FDA-Public Use
  Company Number: None

PATIENT
  Age: 37 Year
  Sex: Female
  Weight: 100.7 kg

DRUGS (1)
  1. LEVAQUIN 500MG UNKNOWN [Suspect]
     Indication: UTI
     Dosage: 500 mg 1xdaily po
     Route: 048
     Dates: start: 20121109, end: 20121115

REACTIONS (7)
  - Rash [None]
  - Rash [None]
  - Chest pain [None]
  - Myalgia [None]
  - Abdominal pain upper [None]
  - Drug ineffective [None]
  - Adverse drug reaction [None]
